FAERS Safety Report 6241708-5 (Version None)
Quarter: 2009Q2

REPORT INFORMATION
  Report Type: 
  Country: None (occurrence: None)
  Receive Date: 20090623
  Receipt Date: 20090615
  Transmission Date: 20091009
  Serious: Yes (Congenital Anomaly)
  Sender: FDA-Public Use
  Company Number: US-AVENTIS-200914222US

PATIENT
  Sex: Male

DRUGS (4)
  1. LOVENOX [Suspect]
     Indication: HYPERCOAGULATION
     Route: 064
     Dates: start: 20080808, end: 20090303
  2. LOVENOX [Suspect]
     Indication: PROTEIN S ABNORMAL
     Route: 064
     Dates: start: 20080808, end: 20090303
  3. LOVENOX [Suspect]
     Indication: COAGULATION FACTOR MUTATION
     Route: 064
     Dates: start: 20080808, end: 20090303
  4. PRENATAL VITAMINS                  /01549301/ [Concomitant]
     Dosage: DOSE: UNK
     Route: 064

REACTIONS (2)
  - DRUG EXPOSURE DURING PREGNANCY [None]
  - HYPOSPADIAS [None]
